FAERS Safety Report 5117939-4 (Version None)
Quarter: 2006Q3

REPORT INFORMATION
  Report Type: 
  Country: None (occurrence: None)
  Receive Date: 20060927
  Receipt Date: 20060907
  Transmission Date: 20061208
  Serious: Yes (Other)
  Sender: FDA-Public Use
  Company Number: ES200608003478

PATIENT
  Age: 86 Year
  Sex: Female

DRUGS (8)
  1. FORTEO [Suspect]
     Indication: OSTEOPOROSIS
     Dosage: SEE IMAGE
     Route: 058
     Dates: start: 20060701, end: 20060814
  2. FORTEO [Suspect]
     Indication: OSTEOPOROSIS
     Dosage: SEE IMAGE
     Route: 058
     Dates: start: 20060814, end: 20060814
  3. FORTEO [Concomitant]
  4. ANALGESICS [Concomitant]
  5. ANTIINFLAMMATORY/ANTIRHEUMATIC PRODUCTS [Concomitant]
  6. VENTOLIN [Concomitant]
  7. SERETIDE (FLUTICASONE PROPIONATE, SALMETEROL) [Concomitant]
  8. KARVEA (IRBESARTAN) [Concomitant]

REACTIONS (5)
  - DEPRESSED LEVEL OF CONSCIOUSNESS [None]
  - DIZZINESS [None]
  - DRUG ADMINISTRATION ERROR [None]
  - OVERDOSE [None]
  - PALPITATIONS [None]
